FAERS Safety Report 23773078 (Version 1)
Quarter: 2024Q2

REPORT INFORMATION
  Report Type: Spontaneous
  Country: US (occurrence: US)
  Receive Date: 20240423
  Receipt Date: 20240423
  Transmission Date: 20240716
  Serious: No
  Sender: FDA-Public Use
  Company Number: US-SANOFI-02017853

PATIENT
  Age: 59 Year
  Sex: Male

DRUGS (1)
  1. LOVENOX [Suspect]
     Active Substance: ENOXAPARIN SODIUM
     Indication: Cerebrovascular accident
     Dosage: 70 MG BID

REACTIONS (5)
  - Injection site rash [Unknown]
  - Injection site bruising [Unknown]
  - Injection site scar [Unknown]
  - Injection site swelling [Unknown]
  - Product use in unapproved indication [Unknown]
